FAERS Safety Report 6653099-6 (Version None)
Quarter: 2010Q1

REPORT INFORMATION
  Report Type: 
  Country: None (occurrence: None)
  Receive Date: 20100309
  Receipt Date: 20090309
  Transmission Date: 20100710
  Serious: Yes (Other)
  Sender: FDA-Public Use
  Company Number: 2009157728

PATIENT
  Sex: Female

DRUGS (1)
  1. PROCARDIA [Suspect]
     Indication: RAYNAUD'S PHENOMENON
     Dosage: 10 MG, 1X/DAY, ORAL
     Route: 048

REACTIONS (1)
  - HYPERTENSIVE CRISIS [None]
